FAERS Safety Report 23849332 (Version 2)
Quarter: 2024Q2

REPORT INFORMATION
  Report Type: Report from Study
  Country: US (occurrence: US)
  Receive Date: 20240513
  Receipt Date: 20240620
  Transmission Date: 20240715
  Serious: Yes (Death, Hospitalization)
  Sender: FDA-Public Use
  Company Number: US-AMNEAL PHARMACEUTICALS-2024-AMRX-01596

PATIENT
  Age: 88 Year
  Sex: Male

DRUGS (6)
  1. CARBIDOPA\LEVODOPA [Suspect]
     Active Substance: CARBIDOPA\LEVODOPA
     Indication: Product used for unknown indication
     Dosage: 61.25-245 MG (TAKE 2 CAPSULES BY MOUTH THREE TIMES A DAY, 6 HOURS APART (7AM, 1PM, 7PM))
     Route: 048
  2. CARBIDOPA\LEVODOPA [Suspect]
     Active Substance: CARBIDOPA\LEVODOPA
     Dosage: 61.25-245 MG (TAKE 1 CAPSULE THREE TIMES A DAY)
     Route: 048
     Dates: start: 20220502
  3. CARBIDOPA\LEVODOPA [Suspect]
     Active Substance: CARBIDOPA\LEVODOPA
     Dosage: 61.25-245 MG (TAKE 2 CAPSULES THREE TIMES A DAY)
     Route: 048
     Dates: start: 20220624
  4. CARBIDOPA\LEVODOPA [Suspect]
     Active Substance: CARBIDOPA\LEVODOPA
     Dosage: 61.25-245 MG (TAKE 1 CAPSULE THREE TIMES A DAY)
     Route: 048
     Dates: start: 20220725
  5. CARBIDOPA\LEVODOPA [Suspect]
     Active Substance: CARBIDOPA\LEVODOPA
     Dosage: ONE 245MG AND 195MG CAP 3 TIMES DAILY
     Route: 048
  6. CARBIDOPA\LEVODOPA [Suspect]
     Active Substance: CARBIDOPA\LEVODOPA
     Dosage: 61.25-245 MG (TAKE 2 CAPSULES BY MOUTH THREE TIMES A DAY. DIVIDE EVENLY OVER WAKING HOURS)
     Route: 048

REACTIONS (3)
  - Death [Fatal]
  - Asthenia [Not Recovered/Not Resolved]
  - Dysphagia [Not Recovered/Not Resolved]

NARRATIVE: CASE EVENT DATE: 20240501
